FAERS Safety Report 16092433 (Version 1)
Quarter: 2019Q1

REPORT INFORMATION
  Report Type: Spontaneous
  Country: US (occurrence: US)
  Receive Date: 20190319
  Receipt Date: 20190319
  Transmission Date: 20190418
  Serious: No
  Sender: FDA-Public Use
  Company Number: US-MILLICENT HOLDINGS LTD.-MILL20190880

PATIENT
  Age: 64 Year
  Sex: Female

DRUGS (5)
  1. EVENING PRIMROSE OIL [Concomitant]
     Active Substance: EVENING PRIMROSE OIL\HERBALS
     Indication: BREAST TENDERNESS
     Dosage: UNKNOWN
     Route: 065
  2. FEMRING [Suspect]
     Active Substance: ESTRADIOL ACETATE
     Indication: BREAST PAIN
     Dosage: UNKNOWN
     Route: 067
     Dates: start: 2015
  3. SINGULAIR [Concomitant]
     Active Substance: MONTELUKAST SODIUM
     Indication: PRODUCT USED FOR UNKNOWN INDICATION
     Dosage: UNKNOWN
     Route: 048
  4. AYGESTIN [Concomitant]
     Active Substance: NORETHINDRONE ACETATE
     Indication: PRODUCT USED FOR UNKNOWN INDICATION
     Dosage: UNKNOWN
     Route: 048
  5. SYNTHROID [Concomitant]
     Active Substance: LEVOTHYROXINE SODIUM
     Indication: HYPOTHYROIDISM
     Dosage: 175 MCG
     Route: 048

REACTIONS (2)
  - Product use in unapproved indication [None]
  - Complication of device removal [Unknown]
